FAERS Safety Report 16891208 (Version 1)
Quarter: 2019Q4

REPORT INFORMATION
  Report Type: Spontaneous
  Country: ES (occurrence: ES)
  Receive Date: 20191007
  Receipt Date: 20191007
  Transmission Date: 20200122
  Serious: Yes (Other)
  Sender: FDA-Public Use
  Company Number: ES-PFIZER INC-2019427079

PATIENT
  Age: 61 Year
  Sex: Female
  Weight: 62 kg

DRUGS (2)
  1. ORFIDAL [Suspect]
     Active Substance: LORAZEPAM
     Indication: SEDATION
     Dosage: 1 MG, 1X/DAY
     Dates: start: 2000
  2. FLATORIL [CLEBOPRIDE;DIMETICONE] [Suspect]
     Active Substance: CLEBOPRIDE MALATE\DIMETHICONE
     Indication: FLATULENCE
     Dosage: 1 DF, 3X/DAY (1 EVERY 8 HOURS)
     Route: 048
     Dates: start: 20190703, end: 20190805

REACTIONS (3)
  - Depression [Not Recovered/Not Resolved]
  - Personality change [Not Recovered/Not Resolved]
  - Sedation [Not Recovered/Not Resolved]

NARRATIVE: CASE EVENT DATE: 20190731
